FAERS Safety Report 6310681-3 (Version None)
Quarter: 2009Q3

REPORT INFORMATION
  Report Type: 
  Country: None (occurrence: None)
  Receive Date: 20090814
  Receipt Date: 20090807
  Transmission Date: 20100115
  Serious: Yes (Disabling, Other)
  Sender: FDA-Public Use
  Company Number: MT-ABBOTT-09P-103-0558430-00

PATIENT
  Sex: Female
  Weight: 62 kg

DRUGS (1)
  1. KLACID XL [Suspect]
     Indication: LOWER RESPIRATORY TRACT INFECTION
     Route: 048
     Dates: start: 20090207, end: 20090208

REACTIONS (4)
  - FACIAL PALSY [None]
  - HYPOAESTHESIA FACIAL [None]
  - MIGRAINE [None]
  - NAUSEA [None]
